FAERS Safety Report 5696346-X (Version None)
Quarter: 2008Q2

REPORT INFORMATION
  Report Type: 
  Country: None (occurrence: None)
  Receive Date: 20080407
  Receipt Date: 20080401
  Transmission Date: 20081010
  Serious: Yes (Disabling)
  Sender: FDA-Public Use
  Company Number: US-ASTRAZENECA-2008UW05060

PATIENT
  Age: 64 Year
  Sex: Female

DRUGS (1)
  1. CRESTOR [Suspect]
     Route: 048
     Dates: start: 20070101

REACTIONS (3)
  - GAIT DISTURBANCE [None]
  - HYPERSENSITIVITY [None]
  - MYALGIA [None]
